FAERS Safety Report 16156785 (Version 1)
Quarter: 2019Q2

REPORT INFORMATION
  Report Type: Spontaneous
  Country: KR (occurrence: KR)
  Receive Date: 20190404
  Receipt Date: 20190404
  Transmission Date: 20190711
  Serious: Yes (Other)
  Sender: FDA-Public Use
  Company Number: KR-009507513-1903KOR011415

PATIENT
  Sex: Female

DRUGS (2)
  1. JANUMET XR [Suspect]
     Active Substance: METFORMIN HYDROCHLORIDE\SITAGLIPTIN PHOSPHATE
     Route: 048
  2. LIVIAL [Suspect]
     Active Substance: TIBOLONE
     Indication: MENOPAUSAL SYMPTOMS
     Dosage: UNK
     Route: 048
     Dates: start: 20190316

REACTIONS (6)
  - Diabetes mellitus inadequate control [Unknown]
  - Vaginal discharge [Unknown]
  - Galactorrhoea [Unknown]
  - Dyspepsia [Unknown]
  - Intentional product use issue [Unknown]
  - Circumstance or information capable of leading to medication error [Unknown]

NARRATIVE: CASE EVENT DATE: 20190316
